FAERS Safety Report 5677747-2 (Version None)
Quarter: 2008Q1

REPORT INFORMATION
  Report Type: 
  Country: None (occurrence: None)
  Receive Date: 20080324
  Receipt Date: 20080226
  Transmission Date: 20080703
  Serious: No
  Sender: FDA-Public Use
  Company Number: US-ABBOTT-08P-163-0439848-00

PATIENT
  Sex: Female
  Weight: 69.462 kg

DRUGS (2)
  1. BIAXIN XL [Suspect]
     Indication: LYME DISEASE
     Route: 048
     Dates: start: 20080213
  2. HYDROXYCHLOROQUINE PHOSPHATE [Concomitant]
     Indication: DRUG USE FOR UNKNOWN INDICATION
     Route: 048

REACTIONS (2)
  - DYSGEUSIA [None]
  - RASH [None]
